FAERS Safety Report 4335323-8 (Version None)
Quarter: 2004Q2

REPORT INFORMATION
  Report Type: 
  Country: None (occurrence: None)
  Receive Date: 20040407
  Receipt Date: 20040407
  Transmission Date: 20050107
  Serious: Yes (Disabling, Other)
  Sender: FDA-Public Use
  Company Number: None

PATIENT
  Age: 74 Year
  Sex: Female
  Weight: 64.8644 kg

DRUGS (3)
  1. ETHAMBUTOL HCL [Suspect]
     Indication: MYCOBACTERIUM AVIUM COMPLEX INFECTION
     Dosage: 3 TABLETS EVERY DAY ORAL
     Route: 048
     Dates: start: 20030820, end: 20040123
  2. FOSAMAX [Concomitant]
  3. ZYRTEC [Concomitant]

REACTIONS (2)
  - HYPOAESTHESIA [None]
  - VISION BLURRED [None]
